FAERS Safety Report 15390008 (Version 2)
Quarter: 2018Q4

REPORT INFORMATION
  Report Type: Report from Study
  Country: US (occurrence: US)
  Receive Date: 20180917
  Receipt Date: 20181122
  Transmission Date: 20190204
  Serious: Yes (Death, Other)
  Sender: FDA-Public Use
  Company Number: US-B.I. PHARMACEUTICALS,INC./RIDGEFIELD-2018-BI-045201

PATIENT
  Age: 68 Year
  Sex: Male

DRUGS (1)
  1. PRADAXA [Suspect]
     Active Substance: DABIGATRAN ETEXILATE MESYLATE
     Indication: THROMBOSIS PROPHYLAXIS
     Route: 048

REACTIONS (4)
  - Post procedural complication [Unknown]
  - Myocardial infarction [Fatal]
  - Haemorrhage [Fatal]
  - Vascular pseudoaneurysm [Unknown]
